FAERS Safety Report 26189737 (Version 1)
Quarter: 2025Q4

REPORT INFORMATION
  Report Type: Spontaneous
  Country: US (occurrence: US)
  Receive Date: 20251223
  Receipt Date: 20251223
  Transmission Date: 20260119
  Serious: No
  Sender: ITALFARMACO
  Company Number: US-ITF-2025-003301

PATIENT
  Age: 12 Year
  Sex: Male

DRUGS (1)
  1. DUVYZAT [Suspect]
     Active Substance: GIVINOSTAT
     Indication: Duchenne muscular dystrophy
     Dosage: UNK
     Route: 065

REACTIONS (1)
  - Alopecia [Unknown]
